FAERS Safety Report 6362871-1 (Version None)
Quarter: 2009Q3

REPORT INFORMATION
  Report Type: 
  Country: None (occurrence: None)
  Receive Date: 20090919
  Receipt Date: 20090611
  Transmission Date: 20100115
  Serious: No
  Sender: FDA-Public Use
  Company Number: US-ABBOTT-09P-163-0579659-00

PATIENT
  Sex: Female
  Weight: 90.8 kg

DRUGS (10)
  1. HUMIRA [Suspect]
     Indication: PSORIATIC ARTHROPATHY
     Route: 058
     Dates: start: 20090501
  2. PREDNISONE [Concomitant]
     Indication: INFLAMMATION
     Route: 048
  3. FOLIC ACID [Concomitant]
     Indication: MEDICAL DIET
  4. LISINOPRIL [Concomitant]
     Indication: HYPERTENSION
     Route: 048
  5. LIPITOR [Concomitant]
     Indication: BLOOD CHOLESTEROL INCREASED
     Route: 048
  6. IMPRAMINE HCL [Concomitant]
     Indication: DRUG USE FOR UNKNOWN INDICATION
     Route: 048
  7. BONIVA [Concomitant]
     Indication: OSTEOPOROSIS PROPHYLAXIS
     Route: 048
  8. METHOTREXATE [Concomitant]
     Indication: INFLAMMATION
     Dosage: 2.5MG
     Route: 048
  9. LOVAZA [Concomitant]
     Indication: MEDICAL DIET
     Route: 058
  10. CALCIUM [Concomitant]
     Indication: MEDICAL DIET
     Route: 048

REACTIONS (1)
  - INJECTION SITE IRRITATION [None]
